FAERS Safety Report 9234650 (Version 1)
Quarter: 2013Q2

REPORT INFORMATION
  Report Type: Spontaneous
  Country: US (occurrence: US)
  Receive Date: 20130416
  Receipt Date: 20130416
  Transmission Date: 20140414
  Serious: No
  Sender: FDA-Public Use
  Company Number: US-PFIZER INC-2013115167

PATIENT
  Age: 74 Year
  Sex: Female
  Weight: 62 kg

DRUGS (2)
  1. PREMARIN VAGINAL CREAM [Suspect]
     Indication: ATROPHIC VULVOVAGINITIS
     Dosage: 0.5 G, 1X/DAY
     Route: 067
     Dates: start: 201302, end: 201302
  2. LOSARTAN [Concomitant]
     Indication: HYPERTENSION
     Dosage: 50 MG, 1X/DAY

REACTIONS (3)
  - Nightmare [Unknown]
  - Middle insomnia [Unknown]
  - Insomnia [Unknown]
